FAERS Safety Report 7957659-1 (Version None)
Quarter: 2011Q4

REPORT INFORMATION
  Report Type: 
  Country: None (occurrence: None)
  Receive Date: 20111205
  Receipt Date: 20111122
  Transmission Date: 20120403
  Serious: Yes (Other)
  Sender: FDA-Public Use
  Company Number: PHHY2010BR29358

PATIENT
  Age: 60 Year
  Sex: Female

DRUGS (2)
  1. GLEEVEC [Suspect]
     Indication: CHRONIC MYELOID LEUKAEMIA
     Dosage: 600 MG DAILY
     Dates: start: 20060725
  2. GLEEVEC [Suspect]
     Dosage: 400 MG DAILY
     Dates: start: 20100101

REACTIONS (12)
  - PANCYTOPENIA [None]
  - ANXIETY [None]
  - PERSONALITY DISORDER [None]
  - FLATULENCE [None]
  - PLATELET COUNT DECREASED [None]
  - FATIGUE [None]
  - BREAST CANCER [None]
  - NEOPLASM MALIGNANT [None]
  - EATING DISORDER [None]
  - ABDOMINAL PAIN UPPER [None]
  - CONJUNCTIVAL HAEMORRHAGE [None]
  - EROSIVE OESOPHAGITIS [None]
